FAERS Safety Report 10850437 (Version 2)
Quarter: 2015Q1

REPORT INFORMATION
  Report Type: Spontaneous
  Country: BR (occurrence: BR)
  Receive Date: 20150222
  Receipt Date: 20150225
  Transmission Date: 20150721
  Serious: No
  Sender: FDA-Public Use
  Company Number: PHHY2015BR020951

PATIENT
  Age: 30 Year
  Sex: Male

DRUGS (1)
  1. GLIVEC [Suspect]
     Active Substance: IMATINIB MESYLATE
     Indication: APOPTOSIS
     Dosage: 400 MG, QD
     Route: 065

REACTIONS (1)
  - Drug resistance [Unknown]
